FAERS Safety Report 7700277-0 (Version None)
Quarter: 2011Q3

REPORT INFORMATION
  Report Type: 
  Country: None (occurrence: None)
  Receive Date: 20110822
  Receipt Date: 20110812
  Transmission Date: 20111222
  Serious: Yes (Hospitalization, Disabling)
  Sender: FDA-Public Use
  Company Number: US-US-EMD SERONO, INC.-232062J09USA

PATIENT
  Sex: Female
  Weight: 95 kg

DRUGS (6)
  1. FLEXERIL [Concomitant]
     Indication: MUSCLE SPASMS
  2. FLEXERIL [Concomitant]
     Indication: TREMOR
  3. SAVELLA [Concomitant]
     Indication: ANXIETY
     Dates: start: 20090901
  4. REBIF [Suspect]
     Indication: MULTIPLE SCLEROSIS
     Route: 058
     Dates: start: 20081111, end: 20101212
  5. SAVELLA [Concomitant]
     Indication: FIBROMYALGIA
  6. PERCOCET [Concomitant]
     Indication: PAIN

REACTIONS (9)
  - MULTIPLE SCLEROSIS RELAPSE [None]
  - CONSTIPATION [None]
  - FALL [None]
  - FATIGUE [None]
  - DYSURIA [None]
  - CYSTITIS [None]
  - INJECTION SITE REACTION [None]
  - PAIN [None]
  - INTERVERTEBRAL DISC PROTRUSION [None]
